FAERS Safety Report 21577774 (Version 2)
Quarter: 2024Q3

REPORT INFORMATION
  Report Type: Spontaneous
  Country: IT (occurrence: IT)
  Receive Date: 20221110
  Receipt Date: 20240926
  Transmission Date: 20241017
  Serious: Yes (Other)
  Sender: CELLTRION
  Company Number: IT-CELLTRION INC.-2022IT018471

PATIENT

DRUGS (2)
  1. TRUXIMA [Suspect]
     Active Substance: RITUXIMAB-ABBS
     Indication: B-cell lymphoma
     Dosage: 375 MG, INFUSION, FIRST FOUR DOSES EVERY 15 DAYS
  2. TRUXIMA [Suspect]
     Active Substance: RITUXIMAB-ABBS
     Dosage: 375 MG, INFUSION, ONES GIVEN EVERY MONTH

REACTIONS (4)
  - Oral lichenoid reaction [Not Recovered/Not Resolved]
  - Arthralgia [Unknown]
  - Rash papular [Unknown]
  - Stomatitis [Unknown]
